FAERS Safety Report 16340765 (Version 2)
Quarter: 2019Q3

REPORT INFORMATION
  Report Type: Spontaneous
  Country: US (occurrence: US)
  Receive Date: 20190522
  Receipt Date: 20190820
  Transmission Date: 20191004
  Serious: Yes (Other)
  Sender: FDA-Public Use
  Company Number: US-009507513-1905USA008483

PATIENT
  Age: 62 Year
  Sex: Female

DRUGS (1)
  1. INTRON A [Suspect]
     Active Substance: INTERFERON ALFA-2B
     Indication: ACUTE LEUKAEMIA
     Dosage: 0.5 MILLIGRAM (3 MMU), THREE TIMES A WEEK, STRENGTH REPORTED AS 6 MMU/ML
     Route: 058
     Dates: start: 201905

REACTIONS (3)
  - Nausea [Unknown]
  - Vomiting [Unknown]
  - Accidental overdose [Unknown]

NARRATIVE: CASE EVENT DATE: 201905
